FAERS Safety Report 23880634 (Version 2)
Quarter: 2024Q2

REPORT INFORMATION
  Report Type: Report from Study
  Country: US (occurrence: US)
  Receive Date: 20240521
  Receipt Date: 20240628
  Transmission Date: 20240715
  Serious: Yes (Other)
  Sender: FDA-Public Use
  Company Number: US-PFIZER INC-202400125078

PATIENT
  Age: 75 Year
  Sex: Female

DRUGS (2)
  1. IBRANCE [Suspect]
     Active Substance: PALBOCICLIB
     Dosage: 100 MG (1 TABLET), CYCLIC (D 1-21 Q 28 DAYS)
     Route: 048
     Dates: start: 20180914
  2. IBRANCE [Suspect]
     Active Substance: PALBOCICLIB
     Dosage: 100 MG (1 TABLET), CYCLIC (D 1-21 Q 28 DAYS)
     Route: 048
     Dates: end: 20240617

REACTIONS (1)
  - Cataract [Recovered/Resolved]
